FAERS Safety Report 7034254-2 (Version None)
Quarter: 2010Q4

REPORT INFORMATION
  Report Type: 
  Country: None (occurrence: None)
  Receive Date: 20101008
  Receipt Date: 20100929
  Transmission Date: 20110411
  Serious: Yes (Hospitalization)
  Sender: FDA-Public Use
  Company Number: US-BIOGENIDEC-2010BI034155

PATIENT
  Age: 30 Year
  Sex: Female
  Weight: 78 kg

DRUGS (5)
  1. TYSABRI [Suspect]
     Indication: MULTIPLE SCLEROSIS
     Route: 042
     Dates: start: 20050101, end: 20050201
  2. TYSABRI [Suspect]
     Route: 042
     Dates: start: 20070417, end: 20070525
  3. AVONEX [Concomitant]
     Indication: MULTIPLE SCLEROSIS
     Route: 030
     Dates: start: 20020101, end: 20030101
  4. AVONEX [Concomitant]
     Route: 030
     Dates: start: 20030101, end: 20050101
  5. AVONEX [Concomitant]
     Route: 030
     Dates: start: 20090101

REACTIONS (4)
  - DYSPNOEA [None]
  - ERYTHEMA [None]
  - GASTROINTESTINAL OBSTRUCTION [None]
  - HYPERVENTILATION [None]
